FAERS Safety Report 12187160 (Version 1)
Quarter: 2016Q1

REPORT INFORMATION
  Report Type: Spontaneous
  Country: US (occurrence: US)
  Receive Date: 20160317
  Receipt Date: 20160317
  Transmission Date: 20160526
  Serious: No
  Sender: FDA-Public Use
  Company Number: US-ARBOR PHARMACEUTICALS, LLC-US-2015ARB000669

PATIENT

DRUGS (4)
  1. EDARBI [Concomitant]
     Active Substance: AZILSARTAN KAMEDOXOMIL
     Indication: HYPERTENSION
     Dosage: 80 MG, QD
     Route: 048
  2. EDARBYCLOR [Suspect]
     Active Substance: AZILSARTAN KAMEDOXOMIL\CHLORTHALIDONE
     Indication: HYPERTENSION
     Dosage: 1 DF, QD, 40/12.5 MG
     Route: 048
     Dates: start: 201502, end: 201502
  3. EDARBI [Concomitant]
     Active Substance: AZILSARTAN KAMEDOXOMIL
     Dosage: 80 MG, QD
     Route: 048
  4. HYDROCHLOROTHIAZIDE. [Concomitant]
     Active Substance: HYDROCHLOROTHIAZIDE
     Indication: HYPERTENSION
     Dosage: DF

REACTIONS (3)
  - Pruritus [Recovered/Resolved]
  - Paraesthesia [Recovered/Resolved]
  - Feeling hot [Recovered/Resolved]

NARRATIVE: CASE EVENT DATE: 201502
